FAERS Safety Report 4827531-4 (Version None)
Quarter: 2005Q4

REPORT INFORMATION
  Report Type: 
  Country: None (occurrence: None)
  Receive Date: 20051114
  Receipt Date: 20051024
  Transmission Date: 20060501
  Serious: Yes (Other)
  Sender: FDA-Public Use
  Company Number: PHRM2005FR02811

PATIENT
  Age: 56 Year
  Sex: Male
  Weight: 60 kg

DRUGS (2)
  1. GLEEVEC [Suspect]
     Indication: CHRONIC MYELOID LEUKAEMIA
     Dosage: 400 MG DAILY
     Route: 048
     Dates: start: 20050401, end: 20051007
  2. AMLOR [Suspect]
     Indication: HYPERTENSION

REACTIONS (3)
  - CYTOLYTIC HEPATITIS [None]
  - DRUG INTERACTION [None]
  - TRANSAMINASES INCREASED [None]
